FAERS Safety Report 4970255-3 (Version None)
Quarter: 2006Q2

REPORT INFORMATION
  Report Type: 
  Country: None (occurrence: None)
  Receive Date: 20060412
  Receipt Date: 20060404
  Transmission Date: 20061013
  Serious: Yes (Life-Threatening, Hospitalization)
  Sender: FDA-Public Use
  Company Number: PHRM2006FR01227

PATIENT
  Age: 55 Year
  Sex: Male
  Weight: 62 kg

DRUGS (9)
  1. LIORESAL [Suspect]
     Dosage: 50 MG, BID
     Route: 048
  2. SERESTA [Suspect]
     Dosage: 10 MG, QD
     Route: 048
  3. MOPRAL [Concomitant]
     Dosage: 20 MG, QD
     Route: 048
  4. LOXEN [Concomitant]
     Indication: HYPERTENSION
  5. PREVISCAN [Concomitant]
     Indication: ATRIAL FIBRILLATION
     Dosage: 10 MG, QD
     Route: 048
  6. LASILIX [Concomitant]
     Dosage: 40 MG, QD
     Route: 048
  7. PARACETAMOL [Concomitant]
  8. CETORNAN [Concomitant]
  9. CORDARONE [Concomitant]
     Dosage: 200 MG/DAY
     Route: 048

REACTIONS (23)
  - BLOOD BICARBONATE DECREASED [None]
  - BLOOD CREATININE INCREASED [None]
  - BLOOD LACTIC ACID INCREASED [None]
  - BLOOD PH DECREASED [None]
  - BLOOD UREA INCREASED [None]
  - BRADYCARDIA [None]
  - BRADYPNOEA [None]
  - COMA [None]
  - CREATININE URINE DECREASED [None]
  - DEHYDRATION [None]
  - DIARRHOEA [None]
  - DISTURBANCE IN ATTENTION [None]
  - GLASGOW COMA SCALE ABNORMAL [None]
  - HAEMODYNAMIC INSTABILITY [None]
  - HYPOTENSION [None]
  - METABOLIC ACIDOSIS [None]
  - MIOSIS [None]
  - NEUROLOGICAL SYMPTOM [None]
  - RENAL FAILURE [None]
  - UREA URINE INCREASED [None]
  - URINE CHLORIDE DECREASED [None]
  - URINE POTASSIUM DECREASED [None]
  - VOMITING [None]
